FAERS Safety Report 7350974-4 (Version None)
Quarter: 2011Q1

REPORT INFORMATION
  Report Type: 
  Country: None (occurrence: None)
  Receive Date: 20110314
  Receipt Date: 20110303
  Transmission Date: 20110831
  Serious: No
  Sender: FDA-Public Use
  Company Number: US-JNJFOC-20110302473

PATIENT
  Sex: Female

DRUGS (2)
  1. INVEGA SUSTENNA [Suspect]
     Indication: SCHIZOPHRENIA
     Dosage: 156MG INITIATION DOSE ON DAY ONE
     Route: 030
  2. INVEGA SUSTENNA [Suspect]
     Dosage: 156 MG AS MAINTENANCE DOSE
     Route: 030

REACTIONS (3)
  - THERAPEUTIC RESPONSE UNEXPECTED [None]
  - INCORRECT DOSE ADMINISTERED [None]
  - FLAT AFFECT [None]
